FAERS Safety Report 25417666 (Version 1)
Quarter: 2025Q2

REPORT INFORMATION
  Report Type: Spontaneous
  Country: US (occurrence: None)
  Receive Date: 20250609
  Receipt Date: 20250609
  Transmission Date: 20250716
  Serious: Yes (Hospitalization)
  Sender: FDA-CTU
  Company Number: None

PATIENT
  Sex: Female

DRUGS (7)
  1. TACROLIMUS [Suspect]
     Active Substance: TACROLIMUS
     Indication: Liver transplant
     Dates: start: 20181229
  2. DILTIAZEM CAP [Concomitant]
  3. LEVOTHYROXIN TAB [Concomitant]
  4. LOSARTAN POT TAB [Concomitant]
  5. METOPROL TAR TAB [Concomitant]
  6. METOPROL TAR TAB [Concomitant]
  7. ITACROLIMUS CAP [Concomitant]

REACTIONS (1)
  - Surgery [None]
